APPROVED DRUG PRODUCT: ANOQUAN
Active Ingredient: ACETAMINOPHEN; BUTALBITAL; CAFFEINE
Strength: 325MG;50MG;40MG
Dosage Form/Route: CAPSULE;ORAL
Application: A087628 | Product #001
Applicant: SHIRE DEVELOPMENT INC
Approved: Oct 1, 1986 | RLD: No | RS: No | Type: DISCN